FAERS Safety Report 5763487-8 (Version None)
Quarter: 2008Q2

REPORT INFORMATION
  Report Type: 
  Country: None (occurrence: None)
  Receive Date: 20080529
  Receipt Date: 20071106
  Transmission Date: 20081010
  Serious: Yes (Hospitalization)
  Sender: FDA-Public Use
  Company Number: CIP07001811

PATIENT
  Age: 59 Year
  Sex: Female
  Weight: 44.4 kg

DRUGS (17)
  1. ACTONEL [Suspect]
     Indication: OSTEOPOROSIS
     Dosage: 35 MG ONCE WEEKLY, ORAL
     Route: 048
     Dates: start: 20040101
  2. FOSAMAX [Suspect]
     Indication: OSTEOPOROSIS
     Dosage: 20 MG DAILY, ORAL
     Route: 048
     Dates: start: 19970801, end: 20040101
  3. MOBIC [Concomitant]
  4. AMITRIPTLINE HYDROCHLORIDE TAB [Concomitant]
  5. LIPITOR [Concomitant]
  6. BACTRIUM DS (TRIMETHOPRIM, SULFAMETHOXAZOLE) [Concomitant]
  7. PREMARIN [Concomitant]
  8. PREVACID [Concomitant]
  9. PLAVIX [Concomitant]
  10. ZIAC [Concomitant]
  11. PERCOCET [Concomitant]
  12. COLACE (DOCUSATE SODIUM) [Concomitant]
  13. SONATA [Concomitant]
  14. IMITREX [Concomitant]
  15. NEXIUM [Concomitant]
  16. CELEBREX [Concomitant]
  17. MAXAIR [Concomitant]

REACTIONS (11)
  - BONE DISORDER [None]
  - ERYTHEMA [None]
  - IMPAIRED HEALING [None]
  - OSTEOMYELITIS [None]
  - OSTEONECROSIS [None]
  - PAIN IN JAW [None]
  - RESORPTION BONE INCREASED [None]
  - STREPTOCOCCAL ABSCESS [None]
  - SWELLING [None]
  - TOOTH ABSCESS [None]
  - WEIGHT DECREASED [None]
